FAERS Safety Report 7468351-4 (Version None)
Quarter: 2011Q2

REPORT INFORMATION
  Report Type: 
  Country: None (occurrence: None)
  Receive Date: 20110509
  Receipt Date: 20081103
  Transmission Date: 20111010
  Serious: Yes (Other)
  Sender: FDA-Public Use
  Company Number: US-BAYER-200837946NA

PATIENT
  Age: 47 Year
  Sex: Male
  Weight: 117.46 kg

DRUGS (17)
  1. HEPARIN [Concomitant]
     Dosage: PER HOSPITAL PROTOCOL
     Route: 042
     Dates: start: 20000621
  2. VASOTEC [Concomitant]
     Dosage: 2.5 MG, QS
     Route: 048
     Dates: start: 20000621
  3. INSULIN [INSULIN] [Concomitant]
     Dosage: PER SLIDING SCALE AND DRIP PER PROTOCOL
     Route: 058
     Dates: start: 20000621
  4. PROTAMINE [Concomitant]
     Dosage: UNK
     Route: 042
     Dates: start: 20000626
  5. AMICAR [Concomitant]
     Indication: CORONARY ARTERY BYPASS
     Dosage: 10 MG, UNK
     Route: 042
     Dates: start: 20000626
  6. TRIDIL [Concomitant]
     Indication: MYOCARDIAL ISCHAEMIA
     Dosage: UNK
     Route: 042
     Dates: start: 20000621
  7. LOPRESSOR [Concomitant]
     Route: 048
  8. HEPARIN [Concomitant]
     Dosage: 10000 U, UNK
     Route: 042
     Dates: start: 20000626
  9. INSULIN [INSULIN] [Concomitant]
     Dosage: UNK
     Route: 042
     Dates: start: 20000626
  10. LOVENOX [Concomitant]
     Route: 058
  11. NITROGLYCERIN [Concomitant]
     Dosage: PER PROTOCOL
     Route: 042
     Dates: start: 20000621
  12. AMIODARONE [Concomitant]
     Dosage: UNK
     Route: 042
     Dates: start: 20000621
  13. LASIX [Concomitant]
     Indication: CARDIAC FAILURE CONGESTIVE
     Dosage: IV AND ORAL
     Dates: start: 20000621
  14. TRASYLOL [Suspect]
     Indication: SURGERY
     Dates: start: 20000626
  15. LASIX [Concomitant]
     Dosage: UNK
     Route: 042
     Dates: start: 20000626
  16. INSULIN [INSULIN] [Concomitant]
     Indication: DIABETES MELLITUS
     Dosage: PER SLIDING SCALE AND DRIP PER PROTOCOL
     Route: 042
     Dates: start: 20000621
  17. AMIODARONE [Concomitant]
     Dosage: UNK
     Route: 048
     Dates: start: 20000621

REACTIONS (8)
  - RENAL FAILURE [None]
  - INJURY [None]
  - ANXIETY [None]
  - MYOCARDIAL INFARCTION [None]
  - RENAL IMPAIRMENT [None]
  - UNEVALUABLE EVENT [None]
  - PAIN [None]
  - EMOTIONAL DISTRESS [None]
